FAERS Safety Report 16230606 (Version 9)
Quarter: 2020Q3

REPORT INFORMATION
  Report Type: Report from Study
  Country: US (occurrence: US)
  Receive Date: 20190423
  Receipt Date: 20200819
  Transmission Date: 20201102
  Serious: Yes (Hospitalization)
  Sender: FDA-Public Use
  Company Number: US-ACTELION-A-NJ2019-189126

PATIENT
  Age: 56 Year
  Sex: Female
  Weight: 52.15 kg

DRUGS (14)
  1. VITAMIN D [Concomitant]
     Active Substance: VITAMIN D NOS
     Dosage: 5000 UNK, Q1WEEK
     Dates: start: 201901
  2. ACTONEL [Concomitant]
     Active Substance: RISEDRONATE SODIUM
     Dosage: 150 MG, Q1MONTH
     Dates: start: 2016
  3. ASPIRIN 81 [Concomitant]
     Active Substance: ASPIRIN
     Dosage: 81 MG, QD
     Dates: start: 2018
  4. OPSUMIT [Suspect]
     Active Substance: MACITENTAN
     Dosage: 10 MG, QD
     Route: 048
     Dates: start: 20190327
  5. FUROSEMIDE. [Concomitant]
     Active Substance: FUROSEMIDE
     Dosage: 40 MG, QD
     Dates: start: 201810
  6. ADEMPAS [Concomitant]
     Active Substance: RIOCIGUAT
     Dosage: UNK
     Dates: end: 20190402
  7. MIDODRINE [Concomitant]
     Active Substance: MIDODRINE
     Dosage: 5 MG, BID
     Dates: start: 201812
  8. OPSUMIT [Suspect]
     Active Substance: MACITENTAN
     Indication: PULMONARY HYPERTENSION
     Dosage: 10 MG, QD
     Route: 048
  9. SOLARIS [Concomitant]
  10. DILTIAZEM. [Concomitant]
     Active Substance: DILTIAZEM
     Dosage: 240 MG, QD
  11. FOLIC ACID. [Concomitant]
     Active Substance: FOLIC ACID
     Dosage: 1 MG, QD
     Dates: start: 201902
  12. ALDACTONE [Concomitant]
     Active Substance: SPIRONOLACTONE
     Dosage: 50 MG, QD
     Dates: start: 201903
  13. TYVASO [Suspect]
     Active Substance: TREPROSTINIL
     Indication: PRODUCT USED FOR UNKNOWN INDICATION
     Dosage: 9 BREATHS QID
     Route: 055
     Dates: start: 20200610
  14. WARFARIN [Concomitant]
     Active Substance: WARFARIN
     Dosage: UNK
     Dates: start: 2017

REACTIONS (16)
  - Sickle cell anaemia [Unknown]
  - Diarrhoea [Unknown]
  - Oropharyngeal pain [Unknown]
  - Product administration error [Unknown]
  - Blood disorder [Unknown]
  - Oxygen saturation decreased [Unknown]
  - Cough [Unknown]
  - Nasal congestion [Recovering/Resolving]
  - Transfusion [Unknown]
  - Influenza like illness [Unknown]
  - Nasal discharge discolouration [Unknown]
  - Chest discomfort [Recovered/Resolved]
  - Gastrointestinal haemorrhage [Unknown]
  - Rhinorrhoea [Recovering/Resolving]
  - Oral herpes [Unknown]
  - Nasopharyngitis [Unknown]

NARRATIVE: CASE EVENT DATE: 20190402
